FAERS Safety Report 13255311 (Version 1)
Quarter: 2017Q1

REPORT INFORMATION
  Report Type: Spontaneous
  Country: US (occurrence: US)
  Receive Date: 20170221
  Receipt Date: 20170221
  Transmission Date: 20170428
  Serious: No
  Sender: FDA-Public Use
  Company Number: US-JNJFOC-20161205379

PATIENT
  Age: 41 Year
  Sex: Male

DRUGS (1)
  1. INVEGA SUSTENNA [Suspect]
     Active Substance: PALIPERIDONE PALMITATE
     Indication: PRODUCT USED FOR UNKNOWN INDICATION
     Route: 030

REACTIONS (7)
  - Needle issue [Unknown]
  - Accidental exposure to product [Unknown]
  - Incorrect route of drug administration [Unknown]
  - Off label use [Unknown]
  - Drug administration error [Unknown]
  - Product packaging issue [Unknown]
  - Product leakage [Unknown]

NARRATIVE: CASE EVENT DATE: 20161204
